FAERS Safety Report 12140610 (Version 1)
Quarter: 2016Q1

REPORT INFORMATION
  Report Type: Spontaneous
  Country: US (occurrence: US)
  Receive Date: 20160303
  Receipt Date: 20160303
  Transmission Date: 20160526
  Serious: No
  Sender: FDA-Public Use
  Company Number: US-GLAXOSMITHKLINE-US2016GSK029973

PATIENT
  Sex: Female

DRUGS (1)
  1. ADVAIR DISKUS [Suspect]
     Active Substance: FLUTICASONE PROPIONATE\SALMETEROL XINAFOATE
     Indication: PRODUCT USED FOR UNKNOWN INDICATION
     Dosage: UNK, BID
     Dates: start: 20160222, end: 20160225

REACTIONS (6)
  - Nonspecific reaction [Unknown]
  - Sensation of foreign body [Unknown]
  - Action tremor [Unknown]
  - Pharyngeal oedema [Unknown]
  - Pruritus [Unknown]
  - Dizziness [Unknown]
